FAERS Safety Report 8818730 (Version 2)
Quarter: 2013Q3

REPORT INFORMATION
  Report Type: Spontaneous
  Country: US (occurrence: None)
  Receive Date: 20121002
  Receipt Date: 20130815
  Transmission Date: 20140515
  Serious: Yes (Other)
  Sender: FDA-Public Use
  Company Number: ADR-2012-01590

PATIENT
  Age: 22 Year
  Sex: Female

DRUGS (2)
  1. LIORESAL INTRATHECAL [Suspect]
     Indication: MUSCLE SPASTICITY
  2. LIORESAL INTRATHECAL [Suspect]
     Indication: HEAD INJURY

REACTIONS (6)
  - Device leakage [None]
  - Implant site infection [None]
  - Staphylococcus test positive [None]
  - Acinetobacter test positive [None]
  - Erythema [None]
  - Pyrexia [None]
